FAERS Safety Report 8578993-0 (Version None)
Quarter: 2012Q3

REPORT INFORMATION
  Report Type: 
  Country: None (occurrence: None)
  Receive Date: 20120808
  Receipt Date: 20120731
  Transmission Date: 20120928
  Serious: Yes (Hospitalization, Other)
  Sender: FDA-Public Use
  Company Number: US-VERTEX PHARMACEUTICALS INC.-AE-2012-011323

PATIENT
  Sex: Male
  Weight: 68.1 kg

DRUGS (5)
  1. RIBAVIRIN [Concomitant]
     Route: 048
     Dates: start: 20120729
  2. PEGASYS [Concomitant]
     Indication: HEPATITIS C
     Route: 058
     Dates: start: 20120611
  3. MOTRIN [Concomitant]
     Indication: PAIN
  4. INCIVEK [Suspect]
     Indication: HEPATITIS C
     Route: 048
     Dates: start: 20120611, end: 20120728
  5. RIBAVIRIN [Concomitant]
     Indication: HEPATITIS C
     Route: 048
     Dates: start: 20120611, end: 20120726

REACTIONS (5)
  - PYREXIA [None]
  - HEADACHE [None]
  - PANCYTOPENIA [None]
  - COUGH [None]
  - HYPERSENSITIVITY [None]
